FAERS Safety Report 9994672 (Version 2)
Quarter: 2014Q1

REPORT INFORMATION
  Report Type: Report from Study
  Country: GB (occurrence: GB)
  Receive Date: 20140311
  Receipt Date: 20140324
  Transmission Date: 20141002
  Serious: Yes (Other)
  Sender: FDA-Public Use
  Company Number: GB-ROCHE-1357148

PATIENT
  Age: 62 Year
  Sex: Female
  Weight: 70.2 kg

DRUGS (10)
  1. TRASTUZUMAB [Suspect]
     Indication: HER-2 POSITIVE BREAST CANCER
     Dosage: LOADING DOSE,
     Route: 042
     Dates: start: 20130723, end: 20130723
  2. TRASTUZUMAB [Suspect]
     Dosage: MAINTAINANCE DOSE; LAST DOSE PRIOR TO SAE ON 18/MAR/2014;
     Route: 042
  3. METFORMIN [Concomitant]
     Route: 065
     Dates: start: 1999
  4. SIMVASTATIN [Concomitant]
     Route: 065
     Dates: start: 1999
  5. GLICLAZIDE [Concomitant]
     Route: 065
     Dates: start: 1999
  6. BENDROFLUMETHIAZIDE [Concomitant]
     Route: 065
     Dates: start: 2001
  7. THYROXINE [Concomitant]
     Route: 065
     Dates: start: 2009
  8. PERINDOPRIL [Concomitant]
     Route: 065
     Dates: start: 2010
  9. PERTUZUMAB [Suspect]
     Indication: HER-2 POSITIVE BREAST CANCER
     Dosage: A LOADING DOSE
     Route: 042
     Dates: start: 20130723, end: 20130723
  10. PERTUZUMAB [Suspect]
     Dosage: A MAINTAINANCE DOSE; LAST DOSE PRIOR TO SAE ON 24/DEC/2013
     Route: 042
     Dates: end: 20140318

REACTIONS (1)
  - Hepatic function abnormal [Unknown]
